FAERS Safety Report 16664039 (Version 2)
Quarter: 2019Q4

REPORT INFORMATION
  Report Type: Spontaneous
  Country: US (occurrence: US)
  Receive Date: 20190802
  Receipt Date: 20191101
  Transmission Date: 20200122
  Serious: Yes (Hospitalization, Other)
  Sender: FDA-Public Use
  Company Number: US-ASTRAZENECA-2018SF14212

PATIENT
  Age: 73 Year
  Sex: Male
  Weight: 63.5 kg

DRUGS (72)
  1. NEXIUM [Suspect]
     Active Substance: ESOMEPRAZOLE MAGNESIUM
     Indication: DYSPEPSIA
     Route: 048
     Dates: start: 1989, end: 2017
  2. NEXIUM [Suspect]
     Active Substance: ESOMEPRAZOLE MAGNESIUM
     Indication: DYSPEPSIA
     Route: 048
     Dates: start: 2002
  3. PRILOSEC [Suspect]
     Active Substance: OMEPRAZOLE MAGNESIUM
     Indication: DYSPEPSIA
     Route: 048
     Dates: start: 1989, end: 2017
  4. PREVACID [Suspect]
     Active Substance: LANSOPRAZOLE
     Indication: DYSPEPSIA
     Route: 065
     Dates: start: 1998, end: 2002
  5. BENZONATATE. [Concomitant]
     Active Substance: BENZONATATE
     Indication: COUGH
     Dates: start: 2000
  6. BUSPIRONE [Concomitant]
     Active Substance: BUSPIRONE HYDROCHLORIDE
     Indication: ANXIETY
     Dates: start: 2011
  7. CARVEDILOL. [Concomitant]
     Active Substance: CARVEDILOL
     Indication: CARDIAC FAILURE
     Dates: start: 2017
  8. CLOPIDOGREL [Concomitant]
     Active Substance: CLOPIDOGREL BISULFATE
     Indication: MYOCARDIAL INFARCTION
  9. DOXYCYCLINE. [Concomitant]
     Active Substance: DOXYCYCLINE
     Indication: HYPERSENSITIVITY
     Dates: start: 1998
  10. FLAGYL [Concomitant]
     Active Substance: METRONIDAZOLE\METRONIDAZOLE HYDROCHLORIDE
     Indication: HYPERSENSITIVITY
     Dates: start: 1998
  11. TEQUIN [Concomitant]
     Active Substance: GATIFLOXACIN
     Indication: HYPERSENSITIVITY
  12. TRIAMCINOLONE [Concomitant]
     Active Substance: TRIAMCINOLONE
     Indication: HYPERSENSITIVITY
  13. VENTOLIN [Concomitant]
     Active Substance: ALBUTEROL SULFATE
     Indication: HYPERSENSITIVITY
  14. PRILOSEC [Suspect]
     Active Substance: OMEPRAZOLE MAGNESIUM
     Indication: DYSPEPSIA
     Dosage: GENERIC
     Route: 065
     Dates: start: 2005, end: 2006
  15. PRILOSEC [Suspect]
     Active Substance: OMEPRAZOLE MAGNESIUM
     Indication: DYSPEPSIA
     Dosage: GENERIC
     Route: 065
     Dates: start: 2017
  16. PANTOPRAZOLE [Suspect]
     Active Substance: PANTOPRAZOLE
     Indication: DYSPEPSIA
     Dosage: GENERIC
     Dates: start: 2017, end: 2018
  17. ALPRAZOLAM. [Concomitant]
     Active Substance: ALPRAZOLAM
     Indication: ANXIETY
     Dates: start: 1998, end: 2002
  18. CARVEDILOL. [Concomitant]
     Active Substance: CARVEDILOL
     Indication: HYPERTENSION
     Dates: start: 2017
  19. CLARITIN [Concomitant]
     Active Substance: LORATADINE
     Indication: HYPERSENSITIVITY
  20. HYOSCYAMINE. [Concomitant]
     Active Substance: HYOSCYAMINE
     Indication: HYPERSENSITIVITY
     Dates: start: 1999
  21. METOPROLOL TAR [Concomitant]
     Active Substance: METOPROLOL TARTRATE
     Indication: HYPERSENSITIVITY
     Dates: start: 2017
  22. PHENAZOPYRIDINE. [Concomitant]
     Active Substance: PHENAZOPYRIDINE
     Indication: HYPERSENSITIVITY
     Dates: start: 1998
  23. ATENOLOL. [Concomitant]
     Active Substance: ATENOLOL
     Indication: HYPERTENSION
     Dates: start: 2000, end: 2002
  24. ATENOLOL. [Concomitant]
     Active Substance: ATENOLOL
     Indication: ANGINA UNSTABLE
     Dates: start: 2000, end: 2002
  25. CETRIZINE [Concomitant]
     Active Substance: CETIRIZINE HYDROCHLORIDE
     Indication: HYPERTENSION
     Dates: start: 2017, end: 2018
  26. CETRIZINE [Concomitant]
     Active Substance: CETIRIZINE HYDROCHLORIDE
     Indication: CARDIAC FAILURE
     Dates: start: 2017, end: 2018
  27. HYDROCO/ACETAMIN [Concomitant]
     Indication: HYPERSENSITIVITY
     Dates: start: 2016, end: 2017
  28. LEVOFLOXACIN. [Concomitant]
     Active Substance: LEVOFLOXACIN
     Indication: HYPERSENSITIVITY
     Dates: start: 2017
  29. MAXALT [Concomitant]
     Active Substance: RIZATRIPTAN BENZOATE
     Indication: HYPERSENSITIVITY
     Dates: start: 1998
  30. METHYLPRED [Concomitant]
     Active Substance: METHYLPREDNISOLONE
     Indication: HYPERSENSITIVITY
     Dates: start: 2017
  31. MURO 128 [Concomitant]
     Active Substance: SODIUM CHLORIDE
     Indication: HYPERSENSITIVITY
     Dates: start: 2003
  32. NORVASC [Concomitant]
     Active Substance: AMLODIPINE BESYLATE
     Indication: HYPERSENSITIVITY
     Dates: start: 2003
  33. PROLEX [Concomitant]
     Indication: HYPERSENSITIVITY
  34. PREVENAR [Concomitant]
     Active Substance: PNEUMOCOCCAL 7-VALENT CONJUGATE VACCINE (DIPHTHERIA CRM197 PROTEIN)
     Indication: HYPERSENSITIVITY
  35. TAMSULOSIN [Concomitant]
     Active Substance: TAMSULOSIN
     Indication: HYPERSENSITIVITY
  36. ACETAMI/CODEIN [Concomitant]
     Indication: PAIN
  37. AEROBID [Concomitant]
     Active Substance: FLUNISOLIDE
     Indication: ASTHMA
     Dates: start: 1998
  38. AMOXICILLIN. [Concomitant]
     Active Substance: AMOXICILLIN
     Indication: INFECTION
     Dates: start: 2016
  39. CLOPIDOGREL [Concomitant]
     Active Substance: CLOPIDOGREL BISULFATE
     Indication: CEREBROVASCULAR ACCIDENT
  40. FOSINOPRIL [Concomitant]
     Active Substance: FOSINOPRIL
     Indication: HYPERSENSITIVITY
     Dates: start: 2011
  41. PANCOF [Concomitant]
     Indication: HYPERSENSITIVITY
     Dates: start: 1998
  42. PREDNISONE. [Concomitant]
     Active Substance: PREDNISONE
     Indication: HYPERSENSITIVITY
     Dates: start: 1998
  43. TRAZODONE [Concomitant]
     Active Substance: TRAZODONE HYDROCHLORIDE
     Indication: HYPERSENSITIVITY
  44. VIOXX [Concomitant]
     Active Substance: ROFECOXIB
     Indication: HYPERSENSITIVITY
  45. PRILOSEC [Suspect]
     Active Substance: OMEPRAZOLE MAGNESIUM
     Indication: DYSPEPSIA
     Route: 048
     Dates: start: 2006
  46. AMIODARONE [Concomitant]
     Active Substance: AMIODARONE
     Indication: CARDIAC DISORDER
     Dates: start: 2017
  47. FUROSEMIDE. [Concomitant]
     Active Substance: FUROSEMIDE
     Indication: HYPERSENSITIVITY
     Dates: start: 2017, end: 2018
  48. GABAPENTIN. [Concomitant]
     Active Substance: GABAPENTIN
     Indication: HYPERSENSITIVITY
     Dates: start: 2017
  49. LEVAQUIN [Concomitant]
     Active Substance: LEVOFLOXACIN
     Indication: HYPERSENSITIVITY
     Dates: start: 1998
  50. MIRTAZAPINE. [Concomitant]
     Active Substance: MIRTAZAPINE
     Indication: HYPERSENSITIVITY
     Dates: start: 2018
  51. METOPROLOL TAR [Concomitant]
     Active Substance: METOPROLOL TARTRATE
     Indication: ANGINA PECTORIS
     Dates: start: 2017
  52. PROPACET [Concomitant]
     Active Substance: ACETAMINOPHEN\PROPOXYPHENE NAPSYLATE
     Indication: HYPERSENSITIVITY
  53. ZYRTEC [Concomitant]
     Active Substance: CETIRIZINE HYDROCHLORIDE
     Indication: HYPERSENSITIVITY
     Dates: start: 2001
  54. PRILOSEC OTC [Suspect]
     Active Substance: OMEPRAZOLE MAGNESIUM
     Indication: DYSPEPSIA
     Route: 048
  55. ATROVENT [Concomitant]
     Active Substance: IPRATROPIUM BROMIDE
     Indication: BRONCHOSPASM
     Dates: start: 1998
  56. ONDANSETRON [Concomitant]
     Active Substance: ONDANSETRON
     Indication: HYPERSENSITIVITY
     Dates: start: 2018
  57. PROMETHAZINE [Concomitant]
     Active Substance: PROMETHAZINE HYDROCHLORIDE
     Indication: HYPERSENSITIVITY
  58. SEVELAMER [Concomitant]
     Active Substance: SEVELAMER
     Indication: HYPERSENSITIVITY
  59. ZITHROMAX [Concomitant]
     Active Substance: AZITHROMYCIN DIHYDRATE
     Indication: HYPERSENSITIVITY
     Dates: start: 1998
  60. PREVACID [Suspect]
     Active Substance: LANSOPRAZOLE
     Indication: DYSPEPSIA
     Route: 065
     Dates: start: 1989, end: 2017
  61. ALPRAZOLAM. [Concomitant]
     Active Substance: ALPRAZOLAM
     Indication: PANIC DISORDER
     Dates: start: 1998, end: 2002
  62. CEFDINIR. [Concomitant]
     Active Substance: CEFDINIR
     Indication: BACTERIAL INFECTION
     Dates: start: 2018
  63. CLONIDINE. [Concomitant]
     Active Substance: CLONIDINE
     Indication: HYPERTENSION
  64. DOXYCYCLINE. [Concomitant]
     Active Substance: DOXYCYCLINE
     Indication: HYPERSENSITIVITY
     Dates: start: 2017
  65. LORABID [Concomitant]
     Active Substance: LORACARBEF
     Indication: HYPERSENSITIVITY
     Dates: start: 1998
  66. ROPINIROLE. [Concomitant]
     Active Substance: ROPINIROLE
     Indication: HYPERSENSITIVITY
  67. PRILOSEC OTC [Suspect]
     Active Substance: OMEPRAZOLE MAGNESIUM
     Indication: DYSPEPSIA
     Route: 048
     Dates: start: 1989, end: 2017
  68. AMOXICILLIN. [Concomitant]
     Active Substance: AMOXICILLIN
     Indication: INFECTION
     Dates: start: 2008
  69. CEPHALEXIN. [Concomitant]
     Active Substance: CEPHALEXIN
     Indication: INFECTION
     Dates: start: 2008, end: 2017
  70. DICYCLOMINE [Concomitant]
     Active Substance: DICYCLOMINE HYDROCHLORIDE
     Indication: HYPERSENSITIVITY
  71. SMZ/TMP [Concomitant]
     Active Substance: SULFAMETHOXAZOLE\TRIMETHOPRIM
     Indication: HYPERSENSITIVITY
  72. ZESTRIL [Concomitant]
     Active Substance: LISINOPRIL
     Indication: HYPERSENSITIVITY

REACTIONS (3)
  - Chronic kidney disease [Not Recovered/Not Resolved]
  - Acute kidney injury [Not Recovered/Not Resolved]
  - End stage renal disease [Not Recovered/Not Resolved]

NARRATIVE: CASE EVENT DATE: 2017
